FAERS Safety Report 4964803-7 (Version None)
Quarter: 2006Q2

REPORT INFORMATION
  Report Type: 
  Country: None (occurrence: None)
  Receive Date: 20060406
  Receipt Date: 20051222
  Transmission Date: 20061013
  Serious: Yes (Other)
  Sender: FDA-Public Use
  Company Number: FR-ROCHE-430068

PATIENT
  Age: 20 Year
  Sex: Female
  Weight: 75.3 kg

DRUGS (4)
  1. RIVOTRIL [Suspect]
     Indication: DRUG USE FOR UNKNOWN INDICATION
     Route: 048
  2. RISPERDAL [Suspect]
     Indication: DRUG USE FOR UNKNOWN INDICATION
     Route: 048
  3. TERCIAN [Concomitant]
     Dosage: DOSING REGIMEN UNKNOWN.
     Route: 048
  4. PAROXETINE HYDROCHLORIDE [Concomitant]
     Route: 048

REACTIONS (1)
  - STOMATITIS NECROTISING [None]
